FAERS Safety Report 12192394 (Version 1)
Quarter: 2016Q1

REPORT INFORMATION
  Report Type: Report from Study
  Country: US (occurrence: US)
  Receive Date: 20160318
  Receipt Date: 20160318
  Transmission Date: 20160526
  Serious: Yes (Life-Threatening, Hospitalization, Other)
  Sender: FDA-Public Use
  Company Number: US-AMGEN-USASL2016030424

PATIENT
  Age: 50 Year
  Sex: Female

DRUGS (1)
  1. ENBREL [Suspect]
     Active Substance: ETANERCEPT
     Indication: PRODUCT USED FOR UNKNOWN INDICATION
     Dosage: UNK
     Route: 065
     Dates: end: 2016

REACTIONS (6)
  - Rheumatoid arthritis [Not Recovered/Not Resolved]
  - Anxiety [Unknown]
  - Nephrolithiasis [Unknown]
  - Kidney infection [Unknown]
  - Renal disorder [Unknown]
  - Depression [Unknown]

NARRATIVE: CASE EVENT DATE: 2016
